FAERS Safety Report 7109423-3 (Version None)
Quarter: 2010Q4

REPORT INFORMATION
  Report Type: 
  Country: None (occurrence: None)
  Receive Date: 20101118
  Receipt Date: 20101109
  Transmission Date: 20110411
  Serious: No
  Sender: FDA-Public Use
  Company Number: US-BIOGENIDEC-2010BI036220

PATIENT
  Age: 37 Year
  Sex: Female

DRUGS (1)
  1. TYSABRI [Suspect]
     Indication: MULTIPLE SCLEROSIS
     Route: 042
     Dates: start: 20100920

REACTIONS (7)
  - ADVERSE DRUG REACTION [None]
  - DIZZINESS [None]
  - EYELID OEDEMA [None]
  - HEADACHE [None]
  - RASH [None]
  - URTICARIA [None]
  - VOMITING [None]
